FAERS Safety Report 8381078-X (Version None)
Quarter: 2012Q2

REPORT INFORMATION
  Report Type: 
  Country: None (occurrence: None)
  Receive Date: 20120523
  Receipt Date: 20120515
  Transmission Date: 20120825
  Serious: Yes (Hospitalization, Other)
  Sender: FDA-Public Use
  Company Number: FR-BRISTOL-MYERS SQUIBB COMPANY-16580771

PATIENT
  Age: 85 Year
  Sex: Male
  Weight: 52 kg

DRUGS (6)
  1. XANAX [Concomitant]
  2. STRUCTUM [Concomitant]
     Dosage: 1DF=500 UNITS NOT SPECIFIED
  3. FLECAINIDE ACETATE [Suspect]
     Dosage: PRODUCT STRENGTH IS 100
     Dates: end: 20110427
  4. IRBESARTAN AND HYDROCHLOROTHIAZIDE [Suspect]
     Indication: HYPERTENSION
     Dosage: APROVEL 75MG WAS INTRODUCED ON 28APR11
     Route: 048
     Dates: start: 20100101, end: 20110428
  5. STABLON [Concomitant]
  6. GLUCOPHAGE [Suspect]
     Dosage: 1DF=1000 UNITS NOT SPECIFIED
     Dates: end: 20110427

REACTIONS (6)
  - NEPHRITIS [None]
  - ACUTE PULMONARY OEDEMA [None]
  - LOSS OF CONSCIOUSNESS [None]
  - ORTHOSTATIC HYPOTENSION [None]
  - FALL [None]
  - RENAL FAILURE CHRONIC [None]
